FAERS Safety Report 10355147 (Version 10)
Quarter: 2016Q3

REPORT INFORMATION
  Report Type: Report from Study
  Country: CA (occurrence: CA)
  Receive Date: 20140731
  Receipt Date: 20160923
  Transmission Date: 20161109
  Serious: Yes (Other)
  Sender: FDA-Public Use
  Company Number: PHHY2014CA002302

PATIENT
  Sex: Male

DRUGS (3)
  1. GLEEVEC [Suspect]
     Active Substance: IMATINIB MESYLATE
     Dosage: 400 MG, BID
     Route: 048
  2. GLEEVEC [Suspect]
     Active Substance: IMATINIB MESYLATE
     Indication: GASTROINTESTINAL STROMAL TUMOUR
     Dosage: 400 MG, QD
     Route: 048
     Dates: start: 20131217
  3. GLEEVEC [Suspect]
     Active Substance: IMATINIB MESYLATE
     Dosage: 400 MG, QD
     Route: 048

REACTIONS (12)
  - Malignant neoplasm progression [Unknown]
  - Muscle spasms [Unknown]
  - Photosensitivity reaction [Unknown]
  - Fatigue [Unknown]
  - Nasopharyngitis [Unknown]
  - Recurrent cancer [Unknown]
  - Nausea [Unknown]
  - Somnolence [Unknown]
  - Lip dry [Unknown]
  - Gastrointestinal stromal tumour [Unknown]
  - Dysgeusia [Unknown]
  - Cholelithiasis [Unknown]
